FAERS Safety Report 10062214 (Version 1)
Quarter: 2014Q2

REPORT INFORMATION
  Report Type: Spontaneous
  Country: US (occurrence: None)
  Receive Date: 20140404
  Receipt Date: 20140404
  Transmission Date: 20141212
  Serious: Yes (Other)
  Sender: FDA-Public Use
  Company Number: None

PATIENT
  Age: 57 Year
  Sex: Male
  Weight: 89 kg

DRUGS (1)
  1. CETUXIMAB [Suspect]

REACTIONS (5)
  - Dizziness [None]
  - Loss of consciousness [None]
  - Hypotension [None]
  - Heart rate decreased [None]
  - Oxygen saturation decreased [None]
